FAERS Safety Report 19442907 (Version 1)
Quarter: 2021Q2

REPORT INFORMATION
  Report Type: Spontaneous
  Country: GB (occurrence: GB)
  Receive Date: 20210621
  Receipt Date: 20210621
  Transmission Date: 20210717
  Serious: Yes (Disabling, Other)
  Sender: FDA-Public Use
  Company Number: GB-ACCORD-228627

PATIENT
  Age: 57 Year
  Sex: Female
  Weight: 82.55 kg

DRUGS (5)
  1. TRAZODONE [Suspect]
     Active Substance: TRAZODONE HYDROCHLORIDE
     Indication: BIPOLAR DISORDER
     Dosage: 600MG NOW REDUCED TO 150MG
     Route: 048
     Dates: start: 2001
  2. DEPIXOL [FLUPENTIXOL] [Suspect]
     Active Substance: FLUPENTIXOL
     Indication: BIPOLAR DISORDER
     Dosage: 9MG DAILY
     Route: 048
     Dates: start: 2001, end: 202008
  3. DEPAKOTE [Suspect]
     Active Substance: DIVALPROEX SODIUM
     Indication: BIPOLAR DISORDER
     Dosage: 500MG DAILY
     Route: 048
     Dates: start: 2016
  4. SERTRALINE [Suspect]
     Active Substance: SERTRALINE HYDROCHLORIDE
     Indication: BIPOLAR DISORDER
     Dosage: 100MG DAILY
     Route: 048
     Dates: start: 2000
  5. LITHIUM. [Suspect]
     Active Substance: LITHIUM
     Indication: BIPOLAR DISORDER
     Dosage: 800MG DAILY
     Route: 048
     Dates: start: 2002

REACTIONS (4)
  - Gait disturbance [Unknown]
  - Parkinsonism [Unknown]
  - Confusional state [Unknown]
  - Muscular weakness [Unknown]

NARRATIVE: CASE EVENT DATE: 2014
